FAERS Safety Report 18775257 (Version 9)
Quarter: 2021Q1

REPORT INFORMATION
  Report Type: Spontaneous
  Country: GB (occurrence: GB)
  Receive Date: 20210122
  Receipt Date: 20210311
  Transmission Date: 20210419
  Serious: Yes (Other)
  Sender: FDA-Public Use
  Company Number: GB-TEVA-2021-GB-1868691

PATIENT
  Age: 64 Year
  Sex: Female
  Weight: 58.35 kg

DRUGS (9)
  1. VALGANCICLOVIR. [Suspect]
     Active Substance: VALGANCICLOVIR
     Indication: CYTOMEGALOVIRUS CHORIORETINITIS
     Dosage: 1800 MILLIGRAM DAILY;
     Route: 048
     Dates: start: 20200916
  2. WATER FOR INJECTION [Suspect]
     Active Substance: WATER
     Dosage: 1 UNK,QMO
     Route: 065
     Dates: start: 20201028
  3. PENTAMIDINE [Suspect]
     Active Substance: PENTAMIDINE
     Indication: ANTIFUNGAL PROPHYLAXIS
     Dosage: 1 DOSAGE FORMS, QMO
     Route: 065
     Dates: start: 20201028
  4. TOLVAPTAN [Suspect]
     Active Substance: TOLVAPTAN
     Indication: HYPONATRAEMIA
     Dosage: 75 MILLIGRAM DAILY;
     Route: 048
     Dates: start: 20200218
  5. FILGRASTIM [Suspect]
     Active Substance: FILGRASTIM
     Indication: NEUTROPENIA
     Dosage: 60 MILLION INTERNATIONAL UNIT, QWK
     Route: 058
     Dates: start: 20201020
  6. WATER FOR INJECTION [Suspect]
     Active Substance: WATER
     Indication: MEDICATION DILUTION
     Dosage: 1 UNK,QMO
     Route: 065
  7. PENTAMIDINE ISETIONATE [Suspect]
     Active Substance: PENTAMIDINE ISETHIONATE
     Indication: ANTIFUNGAL PROPHYLAXIS
     Dosage: 240 MG, QMO
     Route: 065
     Dates: start: 20201028
  8. SODIUM CHLORIDE. [Suspect]
     Active Substance: SODIUM CHLORIDE
     Indication: MEDICATION DILUTION
     Route: 042
     Dates: start: 20201028
  9. FILGRASTIM [Suspect]
     Active Substance: FILGRASTIM
     Dosage: UNK
     Route: 065

REACTIONS (5)
  - Off label use [Unknown]
  - Infusion site swelling [Recovered/Resolved]
  - Pruritus [Recovered/Resolved]
  - Infusion site erythema [Recovered/Resolved]
  - Intentional product misuse [Unknown]

NARRATIVE: CASE EVENT DATE: 20201028
